FAERS Safety Report 5459413-1 (Version None)
Quarter: 2007Q3

REPORT INFORMATION
  Report Type: 
  Country: None (occurrence: None)
  Receive Date: 20070919
  Receipt Date: 20070910
  Transmission Date: 20080115
  Serious: Yes (Other)
  Sender: FDA-Public Use
  Company Number: US-JNJFOC-20070902210

PATIENT
  Age: 66 Year
  Sex: Male

DRUGS (10)
  1. INVEGA [Suspect]
     Indication: PSYCHOTIC DISORDER
     Route: 048
  2. RISPERDAL [Suspect]
     Route: 048
  3. RISPERDAL [Suspect]
     Indication: PSYCHOTIC DISORDER
     Route: 048
  4. GLUCOPHAGE [Concomitant]
     Indication: DIABETES MELLITUS
  5. ACTOSE [Concomitant]
     Indication: DIABETES MELLITUS
  6. PRANDIN [Concomitant]
     Indication: DIABETES MELLITUS
  7. SEROQUEL [Concomitant]
     Indication: SLEEP DISORDER
  8. VITAMIN CAP [Concomitant]
     Indication: VITAMIN SUPPLEMENTATION
  9. PREVACID [Concomitant]
     Indication: GASTROOESOPHAGEAL REFLUX DISEASE
  10. LEXAPRO [Concomitant]
     Indication: DEPRESSION
     Route: 048

REACTIONS (5)
  - ASTHENIA [None]
  - CONFUSIONAL STATE [None]
  - DELIRIUM [None]
  - DRUG INEFFECTIVE [None]
  - LETHARGY [None]
